FAERS Safety Report 6436888-2 (Version None)
Quarter: 2009Q4

REPORT INFORMATION
  Report Type: 
  Country: None (occurrence: None)
  Receive Date: 20091109
  Receipt Date: 20091028
  Transmission Date: 20100525
  Serious: Yes (Death)
  Sender: FDA-Public Use
  Company Number: JPI-P-005178

PATIENT
  Age: 70 Year
  Sex: Female

DRUGS (4)
  1. XYREM [Suspect]
     Indication: NARCOLEPSY
     Dosage: SEE IMAGE, ORAL
     Route: 048
     Dates: start: 20080619, end: 20080716
  2. XYREM [Suspect]
     Indication: NARCOLEPSY
     Dosage: SEE IMAGE, ORAL
     Route: 048
     Dates: start: 20080717, end: 20080806
  3. XYREM [Suspect]
     Indication: NARCOLEPSY
     Dosage: SEE IMAGE, ORAL
     Route: 048
     Dates: start: 20080807, end: 20080807
  4. NARCOLEPSY MEDICATIONS [Concomitant]

REACTIONS (1)
  - BLOOD ALCOHOL INCREASED [None]
